FAERS Safety Report 16024691 (Version 4)
Quarter: 2019Q3

REPORT INFORMATION
  Report Type: Spontaneous
  Country: US (occurrence: US)
  Receive Date: 20190301
  Receipt Date: 20190924
  Transmission Date: 20191004
  Serious: Yes (Other)
  Sender: FDA-Public Use
  Company Number: US-ASTRAZENECA-2018SF26276

PATIENT
  Age: 628 Month
  Sex: Male
  Weight: 181.4 kg

DRUGS (20)
  1. MIRALAX [Concomitant]
     Active Substance: POLYETHYLENE GLYCOL 3350
  2. DAPTOMYCIN. [Concomitant]
     Active Substance: DAPTOMYCIN
  3. PRILOSEC [Suspect]
     Active Substance: OMEPRAZOLE MAGNESIUM
     Indication: GASTROOESOPHAGEAL REFLUX DISEASE
     Dosage: GENERIC
     Route: 065
     Dates: start: 2017
  4. PRILOSEC [Suspect]
     Active Substance: OMEPRAZOLE MAGNESIUM
     Indication: GASTROOESOPHAGEAL REFLUX DISEASE
     Route: 048
  5. ASPIRIN. [Concomitant]
     Active Substance: ASPIRIN
  6. LEVEMIR [Concomitant]
     Active Substance: INSULIN DETEMIR
  7. BUSPIRONE [Concomitant]
     Active Substance: BUSPIRONE HYDROCHLORIDE
  8. PRILOSEC [Suspect]
     Active Substance: OMEPRAZOLE MAGNESIUM
     Indication: GASTROOESOPHAGEAL REFLUX DISEASE
     Route: 048
     Dates: start: 20150413, end: 20171109
  9. ALBUTEROL. [Concomitant]
     Active Substance: ALBUTEROL
  10. ATENOLOL. [Concomitant]
     Active Substance: ATENOLOL
  11. SEVELAMER [Concomitant]
     Active Substance: SEVELAMER
  12. PRILOSEC [Suspect]
     Active Substance: OMEPRAZOLE MAGNESIUM
     Indication: GASTROOESOPHAGEAL REFLUX DISEASE
     Route: 048
     Dates: start: 20150413, end: 20171109
  13. NYSTATIN. [Concomitant]
     Active Substance: NYSTATIN
  14. BISACODYL. [Concomitant]
     Active Substance: BISACODYL
  15. NOVOLOG [Concomitant]
     Active Substance: INSULIN ASPART
  16. MECLIZINE [Concomitant]
     Active Substance: MECLIZINE HYDROCHLORIDE
  17. MIDODRINE [Concomitant]
     Active Substance: MIDODRINE
  18. MIDODRINE [Concomitant]
     Active Substance: MIDODRINE
  19. IMODIUM [Concomitant]
     Active Substance: LOPERAMIDE HYDROCHLORIDE
  20. ZOFRAN [Concomitant]
     Active Substance: ONDANSETRON HYDROCHLORIDE

REACTIONS (5)
  - Chronic kidney disease [Not Recovered/Not Resolved]
  - Renal failure [Unknown]
  - Acute kidney injury [Unknown]
  - Renal injury [Unknown]
  - End stage renal disease [Not Recovered/Not Resolved]

NARRATIVE: CASE EVENT DATE: 201509
